FAERS Safety Report 7565775-1 (Version None)
Quarter: 2011Q2

REPORT INFORMATION
  Report Type: 
  Country: None (occurrence: None)
  Receive Date: 20110616
  Receipt Date: 20110606
  Transmission Date: 20111010
  Serious: Yes (Other)
  Sender: FDA-Public Use
  Company Number: 2011SP026187

PATIENT
  Sex: Female

DRUGS (3)
  1. XOPENEX HFA [Suspect]
     Indication: ASTHMA
  2. PROVENTIL [Suspect]
     Indication: PRODUCT USED FOR UNKNOWN INDICATION
  3. XOPENEX [Suspect]
     Indication: PRODUCT USED FOR UNKNOWN INDICATION
     Dosage: ; INH
     Route: 055

REACTIONS (4)
  - INCORRECT DOSE ADMINISTERED BY DEVICE [None]
  - ASTHMA [None]
  - UNEVALUABLE EVENT [None]
  - DRUG EFFECT DECREASED [None]
